FAERS Safety Report 12851121 (Version 2)
Quarter: 2016Q4

REPORT INFORMATION
  Report Type: Spontaneous
  Country: US (occurrence: US)
  Receive Date: 20161017
  Receipt Date: 20161121
  Transmission Date: 20170207
  Serious: No
  Sender: FDA-Public Use
  Company Number: US-JNJFOC-20160913848

PATIENT
  Age: 57 Year
  Sex: Female
  Weight: 110.22 kg

DRUGS (4)
  1. DARZALEX [Suspect]
     Active Substance: DARATUMUMAB
     Indication: PLASMA CELL MYELOMA
     Dosage: INTERRUPTED AND RESTARTED AT 50% OF PREVIOUS RATE.
     Route: 042
     Dates: start: 20160921, end: 20160921
  2. DARZALEX [Suspect]
     Active Substance: DARATUMUMAB
     Indication: PLASMA CELL MYELOMA
     Dosage: 50ML/HR REDUCED RATE
     Route: 042
     Dates: start: 20160802, end: 20160824
  3. DARZALEX [Suspect]
     Active Substance: DARATUMUMAB
     Indication: PLASMA CELL MYELOMA
     Dosage: INTERRUPTED AND RESTARTED AT 50% OF PREVIOUS RATE.
     Route: 042
     Dates: start: 20160921, end: 20160928
  4. DARZALEX [Suspect]
     Active Substance: DARATUMUMAB
     Indication: PLASMA CELL MYELOMA
     Dosage: INTERRUPTED AND RESTARTED AT 50% OF PREVIOUS RATE.
     Route: 042

REACTIONS (1)
  - Cough [Recovered/Resolved]

NARRATIVE: CASE EVENT DATE: 20160824
